FAERS Safety Report 22963758 (Version 5)
Quarter: 2024Q4

REPORT INFORMATION
  Report Type: Report from Study
  Country: ZA (occurrence: ZA)
  Receive Date: 20230921
  Receipt Date: 20241030
  Transmission Date: 20250114
  Serious: Yes (Hospitalization, Disabling, Other)
  Sender: NOVARTIS
  Company Number: ZA-002147023-NVSC2023ZA149843

PATIENT
  Age: 55 Year
  Sex: Male

DRUGS (5)
  1. SIPONIMOD [Suspect]
     Active Substance: SIPONIMOD
     Indication: Secondary progressive multiple sclerosis
     Dosage: 2 MG, QD
     Route: 048
     Dates: start: 20221206
  2. SIPONIMOD [Suspect]
     Active Substance: SIPONIMOD
     Indication: Multiple sclerosis
     Dosage: 2 MG, QD
     Route: 048
  3. SIPONIMOD [Suspect]
     Active Substance: SIPONIMOD
     Dosage: 2 MG, QD
     Route: 048
     Dates: start: 202303
  4. SIPONIMOD [Suspect]
     Active Substance: SIPONIMOD
     Dosage: 2 MG, EVERY 2ND DAY
     Route: 048
  5. OLANZAPINE [Concomitant]
     Active Substance: OLANZAPINE
     Indication: Hallucination, visual
     Dosage: 2.5 MG, BID
     Route: 065

REACTIONS (14)
  - Sepsis [Not Recovered/Not Resolved]
  - Multiple sclerosis relapse [Not Recovered/Not Resolved]
  - Gait disturbance [Not Recovered/Not Resolved]
  - Fatigue [Unknown]
  - Speech disorder [Unknown]
  - Urinary tract infection [Recovering/Resolving]
  - Muscular weakness [Not Recovered/Not Resolved]
  - Lymphopenia [Recovering/Resolving]
  - Optic atrophy [Unknown]
  - Chest pain [Unknown]
  - Dyspnoea [Unknown]
  - Musculoskeletal pain [Unknown]
  - Nystagmus [Unknown]
  - Dysarthria [Unknown]

NARRATIVE: CASE EVENT DATE: 20221206
